FAERS Safety Report 4550441-7 (Version None)
Quarter: 2005Q1

REPORT INFORMATION
  Report Type: 
  Country: None (occurrence: None)
  Receive Date: 20050112
  Receipt Date: 20050104
  Transmission Date: 20050727
  Serious: Yes (Other)
  Sender: FDA-Public Use
  Company Number: GB-GLAXOSMITHKLINE-B0363360A

PATIENT
  Age: 83 Year
  Sex: Female

DRUGS (6)
  1. AMOXICILLIN AND CLAVULANATE POTASSIUM [Suspect]
     Indication: URINARY TRACT INFECTION
     Route: 065
     Dates: start: 20041120, end: 20041126
  2. VENLAFAXINE HCL [Concomitant]
     Indication: DEPRESSION
     Dosage: 225MG PER DAY
     Route: 048
  3. AMLODIPINE [Concomitant]
     Indication: HYPERTENSION
     Dosage: 10MG PER DAY
     Route: 048
     Dates: start: 20041007
  4. HALOPERIDOL [Concomitant]
     Indication: AGGRESSION
     Dosage: .5MG TWICE PER DAY
     Route: 048
     Dates: start: 20041115
  5. SENNA [Concomitant]
     Indication: CONSTIPATION
     Route: 048
     Dates: start: 20040815
  6. ASPIRIN [Concomitant]
     Indication: ANTIPLATELET THERAPY
     Dosage: 75MG PER DAY
     Route: 048
     Dates: end: 20041125

REACTIONS (3)
  - BLOOD ALKALINE PHOSPHATASE INCREASED [None]
  - GAMMA-GLUTAMYLTRANSFERASE INCREASED [None]
  - LIVER FUNCTION TEST ABNORMAL [None]
